FAERS Safety Report 5871322-2 (Version None)
Quarter: 2008Q3

REPORT INFORMATION
  Report Type: 
  Country: None (occurrence: None)
  Receive Date: 20080902
  Receipt Date: 20080325
  Transmission Date: 20090109
  Serious: Yes (Hospitalization)
  Sender: FDA-Public Use
  Company Number: 2008S1002400

PATIENT
  Age: 75 Year
  Sex: Female

DRUGS (3)
  1. SODIUM PHOSPHATES [Suspect]
     Indication: COLONOSCOPY
     Dosage: UNK;169;PO;UNK
     Route: 048
  2. CALCIUM [Concomitant]
  3. VITAMIN D [Concomitant]

REACTIONS (19)
  - BLOOD ALBUMIN DECREASED [None]
  - BLOOD MAGNESIUM DECREASED [None]
  - BLOOD PHOSPHORUS INCREASED [None]
  - BLOOD POTASSIUM DECREASED [None]
  - BLOOD PRESSURE DIASTOLIC DECREASED [None]
  - DIARRHOEA [None]
  - DYSARTHRIA [None]
  - ELECTROCARDIOGRAM QT PROLONGED [None]
  - ELECTROCARDIOGRAM T WAVE AMPLITUDE DECREASED [None]
  - HYPOCALCAEMIA [None]
  - HYPOPARATHYROIDISM [None]
  - HYPOTHYROIDISM [None]
  - MUSCLE SPASMS [None]
  - RECTAL POLYP [None]
  - SPEECH DISORDER [None]
  - TETANY [None]
  - TRISMUS [None]
  - TROUSSEAU'S SYNDROME [None]
  - VITAMIN D DEFICIENCY [None]
